FAERS Safety Report 13459605 (Version 2)
Quarter: 2017Q2

REPORT INFORMATION
  Report Type: Spontaneous
  Country: IT (occurrence: IT)
  Receive Date: 20170419
  Receipt Date: 20170427
  Transmission Date: 20170830
  Serious: Yes (Other)
  Sender: FDA-Public Use
  Company Number: IT-AMGEN-ITASP2017057761

PATIENT
  Age: 81 Year
  Sex: Female

DRUGS (1)
  1. CORLENTOR [Suspect]
     Active Substance: IVABRADINE HYDROCHLORIDE
     Indication: ANGINA PECTORIS
     Dosage: 5 MG, QD
     Route: 048
     Dates: start: 20170315, end: 20170401

REACTIONS (2)
  - Dyspnoea [Recovered/Resolved]
  - Urticaria [Recovered/Resolved]

NARRATIVE: CASE EVENT DATE: 20170401
